FAERS Safety Report 9618468 (Version 1)
Quarter: 2013Q4

REPORT INFORMATION
  Report Type: Spontaneous
  Country: US (occurrence: US)
  Receive Date: 20131014
  Receipt Date: 20131014
  Transmission Date: 20140711
  Serious: No
  Sender: FDA-Public Use
  Company Number: US-PFIZER INC-2013289472

PATIENT
  Age: 28 Year
  Sex: Female

DRUGS (1)
  1. XALKORI [Suspect]
     Dosage: 250 MG, TAKE 1 CAPSULE TWICE DAILY
     Dates: start: 201211

REACTIONS (2)
  - Vaginal discharge [Unknown]
  - Abdominal pain [Unknown]
